FAERS Safety Report 4646109-9 (Version None)
Quarter: 2005Q2

REPORT INFORMATION
  Report Type: 
  Country: None (occurrence: None)
  Receive Date: 20050427
  Receipt Date: 20040405
  Transmission Date: 20051028
  Serious: No
  Sender: FDA-Public Use
  Company Number: US-GLAXOSMITHKLINE-A0505941A

PATIENT
  Age: 33 Year
  Sex: Female

DRUGS (1)
  1. ZOFRAN [Suspect]
     Indication: NAUSEA
     Dosage: 4MG AS REQUIRED
     Route: 048
     Dates: start: 20040227

REACTIONS (2)
  - DRUG EXPOSURE DURING PREGNANCY [None]
  - PHARYNGEAL OEDEMA [None]
